FAERS Safety Report 10462948 (Version 1)
Quarter: 2014Q3

REPORT INFORMATION
  Report Type: Spontaneous
  Country: ZA (occurrence: ZA)
  Receive Date: 20140918
  Receipt Date: 20140918
  Transmission Date: 20150326
  Serious: Yes (Other)
  Sender: FDA-Public Use
  Company Number: ZA-ABBVIE-14K-143-1283855-00

PATIENT
  Sex: Male

DRUGS (1)
  1. HUMIRA [Suspect]
     Active Substance: ADALIMUMAB
     Indication: CROHN^S DISEASE
     Route: 058

REACTIONS (6)
  - Intraneural cyst [Unknown]
  - Bone giant cell tumour [Unknown]
  - Osteolysis [Unknown]
  - Metastases to bone [Unknown]
  - Chordoma [Unknown]
  - Dizziness [Unknown]
